FAERS Safety Report 6775299-7 (Version None)
Quarter: 2010Q2

REPORT INFORMATION
  Report Type: 
  Country: None (occurrence: None)
  Receive Date: 20100617
  Receipt Date: 20100607
  Transmission Date: 20101027
  Serious: Yes (Other)
  Sender: FDA-Public Use
  Company Number: US-PFIZER INC-2010071925

PATIENT
  Sex: Female
  Weight: 58.05 kg

DRUGS (1)
  1. LIPITOR [Suspect]
     Indication: BLOOD CHOLESTEROL INCREASED
     Dosage: UNK
     Route: 048
     Dates: start: 20000101

REACTIONS (6)
  - ANXIETY [None]
  - DYSPEPSIA [None]
  - GASTRIC DISORDER [None]
  - MEMORY IMPAIRMENT [None]
  - ORAL DISCOMFORT [None]
  - PANIC ATTACK [None]
